FAERS Safety Report 17888020 (Version 1)
Quarter: 2020Q2

REPORT INFORMATION
  Report Type: Spontaneous
  Country: US (occurrence: US)
  Receive Date: 20200612
  Receipt Date: 20200612
  Transmission Date: 20200714
  Serious: No
  Sender: FDA-Public Use
  Company Number: US-JNJFOC-20200533627

PATIENT
  Age: 50 Year
  Sex: Female
  Weight: 56.75 kg

DRUGS (1)
  1. MENS ROGAINE EXTRA STRENGTH [Suspect]
     Active Substance: MINOXIDIL
     Indication: ALOPECIA
     Dosage: DOSAGE: HALF A CAPFUL ?PRODUCT LAST ADMINISTERED ON 23-MAY-2020
     Route: 061
     Dates: start: 20200522

REACTIONS (3)
  - Application site erythema [Recovered/Resolved]
  - Application site irritation [Recovered/Resolved]
  - Inappropriate schedule of product administration [Unknown]

NARRATIVE: CASE EVENT DATE: 20200522
